FAERS Safety Report 6293375-2 (Version None)
Quarter: 2009Q3

REPORT INFORMATION
  Report Type: 
  Country: None (occurrence: None)
  Receive Date: 20090731
  Receipt Date: 20090727
  Transmission Date: 20100115
  Serious: Yes (Disabling, Other)
  Sender: FDA-Public Use
  Company Number: US-MERCK-0811USA03808

PATIENT
  Age: 47 Year
  Sex: Female

DRUGS (4)
  1. FOSAMAX [Suspect]
     Indication: OSTEOPOROSIS
     Route: 048
     Dates: start: 19970101, end: 20070601
  2. FOSAMAX [Suspect]
     Route: 048
     Dates: start: 19960101
  3. FOSAMAX [Suspect]
     Indication: OSTEOPENIA
     Route: 048
     Dates: start: 19970101, end: 20070601
  4. FOSAMAX [Suspect]
     Route: 048
     Dates: start: 19960101

REACTIONS (44)
  - ADVERSE DRUG REACTION [None]
  - ADVERSE EVENT [None]
  - ANXIETY [None]
  - ARTHROPATHY [None]
  - BONE DISORDER [None]
  - BREAST DISORDER [None]
  - BREAST MASS [None]
  - CHEST PAIN [None]
  - DENTAL CARIES [None]
  - DENTAL FISTULA [None]
  - DEPRESSION [None]
  - DERMATITIS ALLERGIC [None]
  - DRUG ADMINISTRATION ERROR [None]
  - DRUG INEFFECTIVE [None]
  - DYSPNOEA EXERTIONAL [None]
  - EAR DISORDER [None]
  - EYE DISORDER [None]
  - FOOT FRACTURE [None]
  - FRACTURE [None]
  - HEARING IMPAIRED [None]
  - HERNIA [None]
  - HYPERCHOLESTEROLAEMIA [None]
  - HYPERLIPIDAEMIA [None]
  - INSOMNIA [None]
  - JAW DISORDER [None]
  - MASTITIS [None]
  - MECHANICAL COMPLICATION OF IMPLANT [None]
  - MENTAL DISORDER [None]
  - MOUTH ULCERATION [None]
  - MUSCULAR WEAKNESS [None]
  - NEUROPATHY PERIPHERAL [None]
  - OEDEMA [None]
  - ORAL INFECTION [None]
  - ORAL TORUS [None]
  - OSTEONECROSIS [None]
  - OTITIS MEDIA [None]
  - OVERDOSE [None]
  - PANIC ATTACK [None]
  - RESORPTION BONE INCREASED [None]
  - RESTLESS LEGS SYNDROME [None]
  - TOOTH ABSCESS [None]
  - TOOTH DISORDER [None]
  - TOOTH INFECTION [None]
  - WEIGHT INCREASED [None]
